FAERS Safety Report 9390392 (Version 1)
Quarter: 2013Q3

REPORT INFORMATION
  Report Type: Spontaneous
  Country: US (occurrence: None)
  Receive Date: 20130701
  Receipt Date: 20130701
  Transmission Date: 20140515
  Serious: Yes (Hospitalization)
  Sender: FDA-Public Use
  Company Number: B0903350A

PATIENT
  Age: 67 Year
  Sex: Male

DRUGS (8)
  1. MELPHALAN [Suspect]
     Indication: MYELOFIBROSIS
  2. MYCOPHENOLATE MOFETIL [Suspect]
     Indication: GRAFT VERSUS HOST DISEASE
  3. BUDESONIDE [Suspect]
     Indication: GRAFT VERSUS HOST DISEASE
  4. FLUDARABINE PHOSPHATE [Suspect]
     Indication: MYELOFIBROSIS
  5. CARMUSTINE [Suspect]
     Indication: MYELOFIBROSIS
  6. TACROLIMUS [Suspect]
     Indication: PROPHYLAXIS
  7. METHOTREXATE [Suspect]
     Indication: PROPHYLAXIS
  8. SIROLIMUS [Suspect]
     Indication: PROPHYLAXIS

REACTIONS (7)
  - Pharyngitis [None]
  - Nausea [None]
  - Vomiting [None]
  - Diarrhoea [None]
  - Abdominal pain [None]
  - Polymerase chain reaction [None]
  - Hepatic necrosis [None]
